FAERS Safety Report 15016139 (Version 1)
Quarter: 2018Q2

REPORT INFORMATION
  Report Type: Spontaneous
  Country: US (occurrence: US)
  Receive Date: 20180615
  Receipt Date: 20180615
  Transmission Date: 20180711
  Serious: Yes (Other)
  Sender: FDA-Public Use
  Company Number: US-BAYER-2018-108123

PATIENT
  Sex: Female

DRUGS (1)
  1. ALKA-SELTZER GOLD [Suspect]
     Active Substance: ANHYDROUS CITRIC ACID\POTASSIUM BICARBONATE\SODIUM BICARBONATE
     Dosage: 2 TABLETS
     Route: 048

REACTIONS (5)
  - Product use in unapproved indication [None]
  - Drug administration error [Unknown]
  - Headache [Unknown]
  - Drug dependence [Unknown]
  - Off label use [Unknown]
